FAERS Safety Report 5383525-4 (Version None)
Quarter: 2007Q3

REPORT INFORMATION
  Report Type: 
  Country: None (occurrence: None)
  Receive Date: 20070706
  Receipt Date: 20070621
  Transmission Date: 20080115
  Serious: Yes (Hospitalization)
  Sender: FDA-Public Use
  Company Number: 2007RR-08045

PATIENT
  Age: 29 Year
  Sex: Male
  Weight: 89.6 kg

DRUGS (3)
  1. ADVIL (IBUPROFEN) UNKNOWN [Suspect]
     Indication: PAIN IN EXTREMITY
     Dosage: SEE IMAGE
     Route: 048
     Dates: start: 19950401, end: 19950429
  2. CIPROFIBRATE(CIPROFIBRATE) UNKNOWN [Suspect]
     Dosage: 100 MG, QD, ORAL
     Route: 048
     Dates: start: 19941001, end: 19950429
  3. CIPROFIBRATE(CIPROFIBRATE) UNKNOWN [Suspect]
     Indication: HYPERLIPIDAEMIA
     Dosage: 200 MG, QD, ORAL
     Route: 048

REACTIONS (4)
  - CONTRAST MEDIA REACTION [None]
  - DRUG INTERACTION [None]
  - RENAL FAILURE ACUTE [None]
  - RHABDOMYOLYSIS [None]
